FAERS Safety Report 26149000 (Version 1)
Quarter: 2025Q4

REPORT INFORMATION
  Report Type: Spontaneous
  Country: US (occurrence: US)
  Receive Date: 20251212
  Receipt Date: 20251212
  Transmission Date: 20260118
  Serious: No
  Sender: DR REDDYS
  Company Number: US-DRL-USA-USA/2025/11/017881

PATIENT
  Age: 72 Year
  Sex: Female

DRUGS (1)
  1. AMIODARONE [Suspect]
     Active Substance: AMIODARONE
     Indication: Atrial fibrillation
     Dosage: OVER A DECADE
     Route: 065
     Dates: end: 2024

REACTIONS (1)
  - Iodine overload [Recovered/Resolved]

NARRATIVE: CASE EVENT DATE: 20240101
